FAERS Safety Report 8002758 (Version 9)
Quarter: 2020Q1

REPORT INFORMATION
  Report Type: Report from Study
  Country: CA (occurrence: CA)
  Receive Date: 20110622
  Receipt Date: 20200203
  Transmission Date: 20200409
  Serious: Yes (Death, Hospitalization)
  Sender: FDA-Public Use
  Company Number: PHHY2011CA52549

PATIENT
  Age: 80 Year
  Sex: Male

DRUGS (6)
  1. EXJADE [Suspect]
     Active Substance: DEFERASIROX
     Dosage: 1000 MG, QD
     Route: 048
     Dates: start: 20120625, end: 20170921
  2. EXJADE [Suspect]
     Active Substance: DEFERASIROX
     Indication: MYELODYSPLASTIC SYNDROME
     Dosage: 2000 MG, QD
     Route: 048
     Dates: end: 20110601
  3. EXJADE [Suspect]
     Active Substance: DEFERASIROX
     Dosage: 1500 MG, QD
     Route: 048
  4. EXJADE [Suspect]
     Active Substance: DEFERASIROX
     Dosage: 2500 MG, QD
     Route: 048
  5. EXJADE [Suspect]
     Active Substance: DEFERASIROX
     Dosage: 2000 MG, QD
     Route: 048
  6. JADENU [Suspect]
     Active Substance: DEFERASIROX
     Indication: MYELODYSPLASTIC SYNDROME
     Dosage: 1080 MG, UNK
     Route: 048
     Dates: start: 20181024

REACTIONS (7)
  - Blood iron increased [Unknown]
  - Cardiac disorder [Unknown]
  - Dysstasia [Unknown]
  - Drug ineffective [Unknown]
  - Death [Fatal]
  - Wrong technique in product usage process [Unknown]
  - Serum ferritin increased [Unknown]

NARRATIVE: CASE EVENT DATE: 20191229
